FAERS Safety Report 5540667-8 (Version None)
Quarter: 2007Q4

REPORT INFORMATION
  Report Type: 
  Country: None (occurrence: None)
  Receive Date: 20071129
  Receipt Date: 20070822
  Transmission Date: 20080405
  Serious: Yes (Other)
  Sender: FDA-Public Use
  Company Number: US200708004826

PATIENT
  Age: 41 Year
  Sex: Female
  Weight: 95.2 kg

DRUGS (2)
  1. ZYPREXA [Suspect]
     Indication: SCHIZOAFFECTIVE DISORDER
     Dosage: 15 MG, DAILY (1/D),
     Dates: start: 19960101
  2. LITHIUM CARBONATE [Concomitant]

REACTIONS (1)
  - WEIGHT INCREASED [None]
